FAERS Safety Report 4299894-2 (Version None)
Quarter: 2004Q1

REPORT INFORMATION
  Report Type: 
  Country: None (occurrence: None)
  Receive Date: 20040219
  Receipt Date: 20040219
  Transmission Date: 20041129
  Serious: Yes (Hospitalization)
  Sender: FDA-Public Use
  Company Number: None

PATIENT
  Age: 70 Year
  Sex: Male

DRUGS (5)
  1. DIGOXIN [Suspect]
     Indication: CARDIAC FAILURE CONGESTIVE
     Dosage: 1 PO QD
     Route: 048
  2. METOLAZONE [Concomitant]
  3. HYDROXYUREA [Concomitant]
  4. LEVOTHYROXINE SODIUM [Concomitant]
  5. FELODIPINE [Concomitant]

REACTIONS (2)
  - BRADYCARDIA [None]
  - OEDEMA [None]
